FAERS Safety Report 10078721 (Version 2)
Quarter: 2014Q2

REPORT INFORMATION
  Report Type: Spontaneous
  Country: CH (occurrence: CH)
  Receive Date: 20140415
  Receipt Date: 20140418
  Transmission Date: 20141212
  Serious: Yes (Death)
  Sender: FDA-Public Use
  Company Number: CH-B.I. PHARMACEUTICALS,INC./RIDGEFIELD-2014-BI-16996SI

PATIENT
  Sex: Male
  Weight: 80 kg

DRUGS (6)
  1. PRADAXA [Suspect]
     Indication: ATRIAL FIBRILLATION
     Dosage: 220 MG
     Route: 048
     Dates: start: 20130917, end: 20130927
  2. BELOC ZOK [Concomitant]
     Route: 065
  3. PANTOZOL/PANTOPRAZOL [Concomitant]
     Route: 065
  4. TORASAMID [Concomitant]
     Route: 065
  5. TARGIN [Concomitant]
     Dosage: 5/2.5
     Route: 065
  6. TARGIN [Concomitant]
     Dosage: 10/5
     Route: 065

REACTIONS (2)
  - Gastrointestinal haemorrhage [Fatal]
  - Haematochezia [Fatal]
